FAERS Safety Report 6913064-8 (Version None)
Quarter: 2010Q3

REPORT INFORMATION
  Report Type: 
  Country: None (occurrence: None)
  Receive Date: 20100806
  Receipt Date: 20090629
  Transmission Date: 20110219
  Serious: No
  Sender: FDA-Public Use
  Company Number: US-PFIZER INC-2009234391

PATIENT
  Sex: Female
  Weight: 48.1 kg

DRUGS (1)
  1. DETROL [Suspect]
     Indication: NOCTURIA
     Dosage: 2 MG, 1X/DAY
     Dates: start: 20090601

REACTIONS (3)
  - DRUG INEFFECTIVE [None]
  - DYSPEPSIA [None]
  - INSOMNIA [None]
